FAERS Safety Report 5892137-5 (Version None)
Quarter: 2008Q3

REPORT INFORMATION
  Report Type: 
  Country: None (occurrence: None)
  Receive Date: 20080922
  Receipt Date: 20080912
  Transmission Date: 20090109
  Serious: Yes (Hospitalization, Other)
  Sender: FDA-Public Use
  Company Number: US-ABBOTT-08P-163-0475919-00

PATIENT
  Sex: Female

DRUGS (4)
  1. SYNTHROID [Suspect]
     Indication: HYPOTHYROIDISM
     Route: 048
     Dates: start: 19850101
  2. ONE A DAY 50 PLUS [Concomitant]
     Indication: ROUTINE HEALTH MAINTENANCE
     Route: 048
  3. TUMS [Concomitant]
     Indication: ROUTINE HEALTH MAINTENANCE
     Route: 048
  4. ASCORBIC ACID [Concomitant]
     Indication: ROUTINE HEALTH MAINTENANCE
     Route: 048

REACTIONS (4)
  - BONE MARROW OEDEMA SYNDROME [None]
  - LEUKOPENIA [None]
  - OSTEOPENIA [None]
  - UTERINE LEIOMYOMA [None]
